FAERS Safety Report 5998085-4 (Version None)
Quarter: 2008Q4

REPORT INFORMATION
  Report Type: 
  Country: None (occurrence: None)
  Receive Date: 20081213
  Receipt Date: 20080618
  Transmission Date: 20090506
  Serious: No
  Sender: FDA-Public Use
  Company Number: US-AMGEN-KDL288225

PATIENT
  Sex: Female

DRUGS (1)
  1. ENBREL [Suspect]
     Indication: PSORIASIS
     Route: 058
     Dates: start: 20080402

REACTIONS (4)
  - COUGH [None]
  - OROPHARYNGEAL PAIN [None]
  - RESPIRATORY TRACT CONGESTION [None]
  - RHINORRHOEA [None]
